FAERS Safety Report 8544054 (Version 4)
Quarter: 2013Q1

REPORT INFORMATION
  Report Type: Report from Study
  Country: AT (occurrence: AT)
  Receive Date: 20120503
  Receipt Date: 20130315
  Transmission Date: 20140127
  Serious: Yes (Hospitalization)
  Sender: FDA-Public Use
  Company Number: AT-INCYTE CORPORATION-2012IN000677

PATIENT
  Age: 79 Year
  Sex: Female
  Weight: 65 kg

DRUGS (6)
  1. INC424 [Suspect]
     Indication: MYELOFIBROSIS
     Dosage: 15 MG, BID
     Route: 048
     Dates: start: 20120131, end: 20120419
  2. SINTROM [Suspect]
     Indication: ATRIAL FIBRILLATION
     Dosage: UNK
     Dates: end: 20120419
  3. EXJADE [Concomitant]
  4. CONCOR [Concomitant]
  5. MEXALEN [Concomitant]
  6. VOLTAREN [Concomitant]

REACTIONS (2)
  - Vertigo [Recovered/Resolved]
  - Drop attacks [None]
